FAERS Safety Report 9180488 (Version 1)
Quarter: 2013Q1

REPORT INFORMATION
  Report Type: Spontaneous
  Country: US (occurrence: None)
  Receive Date: 20130320
  Receipt Date: 20130320
  Transmission Date: 20140127
  Serious: Yes (Hospitalization)
  Sender: FDA-Public Use
  Company Number: SYM-2013-01739

PATIENT
  Age: 56 Year
  Sex: Female

DRUGS (11)
  1. TIMOPTIC [Suspect]
     Route: 047
  2. ACETAZOLAMIDE [Suspect]
     Route: 042
  3. BRIMONIDINE TARTRATE [Suspect]
     Route: 047
  4. PREDNISOLONE ACETATE [Suspect]
     Route: 047
  5. TOPIRAMATE (TOPIRAMATE) (TOPIRAMATE) [Concomitant]
  6. VENLAFAXINE HYDROCHLORIDE (VENLAFAXINE HYDROCHLORIDE) (VENLAFAXINE HYDROCHLORIDE) [Concomitant]
  7. ATORVASTATIN (ATORVASTATIN) (ATORVASTATIN) [Concomitant]
  8. BUSPIRONE HYDROCHLORIDE (BUSPIRONE HYDROCHLORIDE) (BUSPIRONE HYDROCHLORIDE) [Concomitant]
  9. MAXZIDE (DYAZIDE) (HYDROCHLOROTHIAZIDE, TRIAMTERENE) [Concomitant]
  10. ESTRADIOL (ESTRADIOL) (ESTRADIOL) [Concomitant]
  11. PROGESTERONE (PROGESTERONE) (PROGESTERONE) [Concomitant]

REACTIONS (3)
  - Angle closure glaucoma [None]
  - Photophobia [None]
  - Photopsia [None]
